FAERS Safety Report 4604640-6 (Version None)
Quarter: 2005Q1

REPORT INFORMATION
  Report Type: 
  Country: None (occurrence: None)
  Receive Date: 20050310
  Receipt Date: 20050304
  Transmission Date: 20050727
  Serious: Yes (Life-Threatening, Disabling)
  Sender: FDA-Public Use
  Company Number: US-MERCK-0503USA00749

PATIENT
  Age: 50 Year
  Sex: Male

DRUGS (4)
  1. VIOXX [Suspect]
     Indication: FRACTURE
     Route: 048
     Dates: start: 20020101, end: 20040101
  2. DURAGESIC-100 [Concomitant]
     Route: 065
  3. PAXIL [Concomitant]
     Route: 065
  4. HYZAAR [Concomitant]
     Route: 065

REACTIONS (2)
  - MYOCARDIAL INFARCTION [None]
  - PULMONARY INFARCTION [None]
